FAERS Safety Report 5272455-4 (Version None)
Quarter: 2007Q1

REPORT INFORMATION
  Report Type: 
  Country: None (occurrence: None)
  Receive Date: 20070322
  Receipt Date: 20070315
  Transmission Date: 20070707
  Serious: Yes (Hospitalization, Other)
  Sender: FDA-Public Use
  Company Number: BE-BAYER-200615041GDS

PATIENT
  Age: 58 Year
  Sex: Female
  Weight: 60 kg

DRUGS (5)
  1. NEXAVAR [Suspect]
     Indication: RENAL CELL CARCINOMA STAGE UNSPECIFIED
     Dosage: TOTAL DAILY DOSE: 800 MG
     Route: 048
     Dates: start: 20061012
  2. EMCONCOR [Concomitant]
     Indication: HYPERTENSION
     Route: 048
     Dates: start: 20050101
  3. ZANTAC [Concomitant]
     Indication: GASTRIC ULCER
     Route: 048
     Dates: start: 20060101
  4. XANAX [Concomitant]
     Indication: ANXIETY
     Route: 048
     Dates: start: 20050101
  5. CIPRALEX [Concomitant]
     Indication: DEPRESSION
     Route: 065
     Dates: start: 20060101

REACTIONS (3)
  - LUNG DISORDER [None]
  - PRURITUS [None]
  - RASH [None]
